FAERS Safety Report 21601662 (Version 1)
Quarter: 2022Q4

REPORT INFORMATION
  Report Type: Spontaneous
  Country: NL (occurrence: NL)
  Receive Date: 20221116
  Receipt Date: 20221116
  Transmission Date: 20230112
  Serious: Yes (Other)
  Sender: FDA-Public Use
  Company Number: NL-LEO Pharma-346050

PATIENT
  Age: 58 Year
  Sex: Male

DRUGS (1)
  1. PROTOPIC [Suspect]
     Active Substance: TACROLIMUS
     Indication: Product used for unknown indication
     Dosage: DOSAGE : FATHER APPLIES THE OINTMENT 1 X/ DAY TO TREAT HIS DAUGHTER OF 16 YEARS

REACTIONS (1)
  - Neuropathy peripheral [Not Recovered/Not Resolved]
